FAERS Safety Report 14529916 (Version 2)
Quarter: 2018Q3

REPORT INFORMATION
  Report Type: Spontaneous
  Country: US (occurrence: US)
  Receive Date: 20180214
  Receipt Date: 20180920
  Transmission Date: 20181010
  Serious: No
  Sender: FDA-Public Use
  Company Number: US-IGSA-SR10005035

PATIENT
  Age: 55 Year
  Sex: Male
  Weight: 98 kg

DRUGS (5)
  1. PROLASTIN?C [Suspect]
     Active Substance: .ALPHA.1-PROTEINASE INHIBITOR HUMAN
     Indication: ALPHA-1 ANTI-TRYPSIN DEFICIENCY
     Dosage: 5880 MG, Q.WK.
     Route: 042
     Dates: start: 20170627
  2. MIRTAZAPINE. [Concomitant]
     Active Substance: MIRTAZAPINE
  3. PROLASTIN?C [Suspect]
     Active Substance: .ALPHA.1-PROTEINASE INHIBITOR HUMAN
     Dosage: 60 MG/KG, Q.WK.
     Route: 042
     Dates: start: 20111021
  4. GABAPENTIN. [Concomitant]
     Active Substance: GABAPENTIN
  5. CLARITIN [Concomitant]
     Active Substance: LORATADINE

REACTIONS (3)
  - Hallucination [Unknown]
  - Visual impairment [Unknown]
  - Gait disturbance [Unknown]

NARRATIVE: CASE EVENT DATE: 20170627
